FAERS Safety Report 4690516-5 (Version None)
Quarter: 2005Q2

REPORT INFORMATION
  Report Type: 
  Country: None (occurrence: None)
  Receive Date: 20050615
  Receipt Date: 20050311
  Transmission Date: 20051028
  Serious: Yes (Disabling)
  Sender: FDA-Public Use
  Company Number: US-MERCK-0503USA02586

PATIENT
  Age: 70 Year
  Sex: Male
  Weight: 78 kg

DRUGS (6)
  1. VIOXX [Suspect]
     Indication: OSTEOARTHRITIS
     Route: 048
     Dates: start: 20010101, end: 20040901
  2. CEPHALEXIN [Concomitant]
     Route: 065
  3. PROMETHAZINE [Concomitant]
     Route: 065
  4. MEPERIDINE HYDROCHLORIDE [Concomitant]
     Route: 065
  5. PREVACID [Concomitant]
     Route: 065
     Dates: start: 19900101
  6. LIPITOR [Concomitant]
     Route: 065
     Dates: start: 20040901

REACTIONS (9)
  - ABDOMINAL PAIN [None]
  - ADVERSE EVENT [None]
  - ANXIETY [None]
  - BLOOD CHOLESTEROL INCREASED [None]
  - CORONARY ARTERY DISEASE [None]
  - EMOTIONAL DISTRESS [None]
  - MYOCARDIAL INFARCTION [None]
  - PAIN [None]
  - TENDON DISORDER [None]
